FAERS Safety Report 5972474-6 (Version None)
Quarter: 2008Q4

REPORT INFORMATION
  Report Type: 
  Country: None (occurrence: None)
  Receive Date: 20081125
  Receipt Date: 20081028
  Transmission Date: 20090506
  Serious: Yes (Hospitalization)
  Sender: FDA-Public Use
  Company Number: 2008-186660-NL

PATIENT
  Age: 24 Year
  Sex: Female

DRUGS (4)
  1. MIRTAZAPINE [Suspect]
  2. ALCOHOL [Suspect]
     Dosage: DF
  3. FLUOXETINE [Suspect]
  4. DIAZEPAM [Suspect]

REACTIONS (7)
  - APATHY [None]
  - BLOOD ETHANOL INCREASED [None]
  - FATIGUE [None]
  - MUSCLE SPASMS [None]
  - OVERDOSE [None]
  - RESTLESSNESS [None]
  - VOMITING [None]
